FAERS Safety Report 5857873-5 (Version None)
Quarter: 2008Q3

REPORT INFORMATION
  Report Type: 
  Country: None (occurrence: None)
  Receive Date: 20080825
  Receipt Date: 20080825
  Transmission Date: 20090109
  Serious: Yes (Other)
  Sender: FDA-Public Use
  Company Number: None

PATIENT
  Age: 55 Year
  Sex: Female
  Weight: 58.9676 kg

DRUGS (2)
  1. REGLAN [Suspect]
     Indication: GALLBLADDER DISORDER
     Dates: start: 20050610, end: 20050614
  2. ACIPHEX [Suspect]
     Indication: GALLBLADDER DISORDER
     Dates: start: 20050610, end: 20050614

REACTIONS (13)
  - ANAL PRURITUS [None]
  - ANXIETY [None]
  - ASTHENIA [None]
  - BLOOD PRESSURE INCREASED [None]
  - CRYING [None]
  - DEPRESSION [None]
  - HAEMATOCHEZIA [None]
  - HEAD TITUBATION [None]
  - NECK PAIN [None]
  - PAIN [None]
  - PARKINSON'S DISEASE [None]
  - PROCTALGIA [None]
  - TREMOR [None]
